FAERS Safety Report 5306010-4 (Version None)
Quarter: 2007Q2

REPORT INFORMATION
  Report Type: 
  Country: None (occurrence: None)
  Receive Date: 20070420
  Receipt Date: 20070420
  Transmission Date: 20071010
  Serious: Yes (Hospitalization)
  Sender: FDA-Public Use
  Company Number: None

PATIENT
  Sex: Male
  Weight: 88.63 kg

DRUGS (2)
  1. CYTARABINE [Suspect]
     Dosage: 1400 MG
  2. DAUNORUBICIN HCL [Suspect]
     Dosage: 270 MG

REACTIONS (14)
  - ANAPHYLACTIC REACTION [None]
  - BLOOD CREATININE INCREASED [None]
  - BLOOD UREA INCREASED [None]
  - DRUG HYPERSENSITIVITY [None]
  - HAEMODIALYSIS [None]
  - HAEMOGLOBIN DECREASED [None]
  - MOUTH HAEMORRHAGE [None]
  - OBSTRUCTIVE AIRWAYS DISORDER [None]
  - OLIGURIA [None]
  - PLATELET COUNT DECREASED [None]
  - RESPIRATORY DISTRESS [None]
  - STRIDOR [None]
  - SWOLLEN TONGUE [None]
  - WHITE BLOOD CELL COUNT DECREASED [None]
